FAERS Safety Report 10209834 (Version 1)
Quarter: 2014Q2

REPORT INFORMATION
  Report Type: Spontaneous
  Country: US (occurrence: US)
  Receive Date: 20140602
  Receipt Date: 20140602
  Transmission Date: 20141212
  Serious: Yes (Hospitalization, Other)
  Sender: FDA-Public Use
  Company Number: US-AMGEN INC.-USASP2014040108

PATIENT
  Age: 61 Year
  Sex: Female
  Weight: 63.49 kg

DRUGS (1)
  1. ENBREL [Suspect]
     Indication: PSORIATIC ARTHROPATHY
     Dosage: 50 MG, QWK
     Route: 058
     Dates: start: 2012, end: 20130922

REACTIONS (4)
  - Diverticulitis [Not Recovered/Not Resolved]
  - Crohn^s disease [Unknown]
  - Spider vein [Unknown]
  - Injection site haemorrhage [Unknown]
